FAERS Safety Report 11673259 (Version 1)
Quarter: 2015Q4

REPORT INFORMATION
  Report Type: Spontaneous
  Country: US (occurrence: US)
  Receive Date: 20151027
  Receipt Date: 20151027
  Transmission Date: 20160304
  Serious: No
  Sender: FDA-Public Use
  Company Number: US-ELI_LILLY_AND_COMPANY-US201007003883

PATIENT
  Sex: Female

DRUGS (2)
  1. PREDNISONE. [Concomitant]
     Active Substance: PREDNISONE
  2. FORTEO [Suspect]
     Active Substance: TERIPARATIDE
     Dates: start: 20100615

REACTIONS (4)
  - Cushingoid [Unknown]
  - Dysphagia [Unknown]
  - Swelling face [Unknown]
  - Swollen tongue [Unknown]

NARRATIVE: CASE EVENT DATE: 20100622
